FAERS Safety Report 7231393-8 (Version None)
Quarter: 2011Q1

REPORT INFORMATION
  Report Type: 
  Country: None (occurrence: None)
  Receive Date: 20110118
  Receipt Date: 20110107
  Transmission Date: 20110831
  Serious: Yes (Hospitalization, Other)
  Sender: FDA-Public Use
  Company Number: US-MERCK-0711USA02136

PATIENT
  Age: 57 Year
  Sex: Female

DRUGS (1)
  1. FOSAMAX [Suspect]
     Indication: OSTEOPOROSIS
     Route: 048
     Dates: start: 20010101, end: 20060601

REACTIONS (28)
  - NECK INJURY [None]
  - JAW FRACTURE [None]
  - CYST RUPTURE [None]
  - HYPERCHOLESTEROLAEMIA [None]
  - SWELLING FACE [None]
  - STRABISMUS [None]
  - DEVICE FAILURE [None]
  - ANAEMIA [None]
  - THERMAL BURN [None]
  - LIPOMA OF BREAST [None]
  - ORAL INFECTION [None]
  - INFECTION [None]
  - HYPERTENSION [None]
  - FOREIGN BODY REACTION [None]
  - BREAST INFLAMMATION [None]
  - IMPAIRED HEALING [None]
  - WOUND DEHISCENCE [None]
  - OSTEOMYELITIS [None]
  - BONE DENSITY DECREASED [None]
  - TOOTH DISORDER [None]
  - SKIN LESION [None]
  - METAPLASIA [None]
  - DERMAL CYST [None]
  - OSTEONECROSIS OF JAW [None]
  - ADVERSE EVENT [None]
  - SKIN CANCER [None]
  - SINUS DISORDER [None]
  - LUNG DISORDER [None]
